FAERS Safety Report 25261662 (Version 1)
Quarter: 2025Q2

REPORT INFORMATION
  Report Type: Report from Study
  Country: US (occurrence: US)
  Receive Date: 20250502
  Receipt Date: 20250502
  Transmission Date: 20250717
  Serious: No
  Sender: ACADIA PHARMACEUTICALS
  Company Number: US-ACADIA PHARMACEUTICALS INC.-ACA-2025-PIM-004876

PATIENT
  Age: 78 Year
  Sex: Female

DRUGS (27)
  1. NUPLAZID [Suspect]
     Active Substance: PIMAVANSERIN TARTRATE
     Indication: Parkinson^s disease
     Dosage: 34 MILLIGRAM, QD
     Route: 048
     Dates: start: 20230915
  2. DONEPEZIL [Concomitant]
     Active Substance: DONEPEZIL
  3. RYTARY [Concomitant]
     Active Substance: CARBIDOPA\LEVODOPA
  4. VITAMIN D3 [Concomitant]
     Active Substance: CHOLECALCIFEROL
  5. PREDNISONE [Concomitant]
     Active Substance: PREDNISONE
  6. MUPIROCIN [Concomitant]
     Active Substance: MUPIROCIN
  7. LORATADINE [Concomitant]
     Active Substance: LORATADINE
  8. LISINOPRIL [Concomitant]
     Active Substance: LISINOPRIL
  9. KRILL OIL OMEGA 3 [Concomitant]
  10. IRON [Concomitant]
     Active Substance: IRON
  11. CINNAMON\HERBALS [Concomitant]
     Active Substance: CINNAMON\HERBALS
  12. MINERALS\VITAMINS [Concomitant]
     Active Substance: MINERALS\VITAMINS
  13. BIOTIN [Concomitant]
     Active Substance: BIOTIN
  14. ASPIRIN [Concomitant]
     Active Substance: ASPIRIN
  15. ATORVASTATIN [Concomitant]
     Active Substance: ATORVASTATIN
  16. ASCORBIC ACID [Concomitant]
     Active Substance: ASCORBIC ACID
  17. IBUPROFEN [Concomitant]
     Active Substance: IBUPROFEN
  18. CARBIDOPA\LEVODOPA [Concomitant]
     Active Substance: CARBIDOPA\LEVODOPA
  19. CITALOPRAM [Concomitant]
     Active Substance: CITALOPRAM
  20. MEMANTINE [Concomitant]
     Active Substance: MEMANTINE
  21. FUROSEMIDE [Concomitant]
     Active Substance: FUROSEMIDE
  22. TRAZODONE [Concomitant]
     Active Substance: TRAZODONE HYDROCHLORIDE
  23. PREGABALIN [Concomitant]
     Active Substance: PREGABALIN
  24. CALCIUM\CHOLECALCIFEROL [Concomitant]
     Active Substance: CALCIUM\CHOLECALCIFEROL
  25. MAGNACET [Concomitant]
     Active Substance: ACETAMINOPHEN\OXYCODONE HYDROCHLORIDE
  26. QUETIAPINE [Concomitant]
     Active Substance: QUETIAPINE
  27. ATIVAN [Concomitant]
     Active Substance: LORAZEPAM

REACTIONS (1)
  - Drooling [Unknown]

NARRATIVE: CASE EVENT DATE: 20250421
